FAERS Safety Report 6261480-2 (Version None)
Quarter: 2009Q3

REPORT INFORMATION
  Report Type: 
  Country: None (occurrence: None)
  Receive Date: 20090709
  Receipt Date: 20090629
  Transmission Date: 20100115
  Serious: Yes (Other)
  Sender: FDA-Public Use
  Company Number: FR-JNJFOC-20090301962

PATIENT
  Age: 28 Year
  Sex: Male

DRUGS (5)
  1. REMICADE [Suspect]
     Dosage: 4TH INFUSION
     Route: 042
  2. REMICADE [Suspect]
     Route: 042
  3. REMICADE [Suspect]
     Route: 042
  4. REMICADE [Suspect]
     Indication: COLITIS ULCERATIVE
     Dosage: INITIAL INFUSION
     Route: 042
  5. IMUREL [Concomitant]
     Indication: COLITIS ULCERATIVE

REACTIONS (3)
  - FOCAL NODULAR HYPERPLASIA [None]
  - SPLENOMEGALY [None]
  - THROMBOCYTOPENIA [None]
